FAERS Safety Report 9132732 (Version 2)
Quarter: 2013Q2

REPORT INFORMATION
  Report Type: Spontaneous
  Country: US (occurrence: US)
  Receive Date: 20130128
  Receipt Date: 20130403
  Transmission Date: 20140414
  Serious: No
  Sender: FDA-Public Use
  Company Number: US-009507513-1301USA011832

PATIENT
  Age: 67 Year
  Sex: Male

DRUGS (5)
  1. VICTRELIS [Suspect]
     Indication: HEPATITIS C
     Dosage: 800 MG, QD
     Dates: start: 2012
  2. PEGINTRON [Suspect]
     Indication: HEPATITIS C
     Dosage: UNK
     Dates: start: 2012
  3. INTRONA [Suspect]
     Indication: HEPATITIS C
     Dosage: 120 MICROGRAM, QW
  4. RIBAPAK [Suspect]
     Indication: HEPATITIS C
     Dosage: UNK
  5. RIBAPAK [Suspect]
     Dosage: 200 MG, UNK

REACTIONS (3)
  - Pyrexia [Unknown]
  - Chills [Unknown]
  - Dizziness [Unknown]
